FAERS Safety Report 4289272-4 (Version None)
Quarter: 2004Q1

REPORT INFORMATION
  Report Type: 
  Country: None (occurrence: None)
  Receive Date: 20040206
  Receipt Date: 20040127
  Transmission Date: 20041129
  Serious: Yes (Hospitalization)
  Sender: FDA-Public Use
  Company Number: 04P-087-0249010-00

PATIENT
  Age: 70 Year
  Sex: Female

DRUGS (4)
  1. MAVIK [Suspect]
     Dosage: PER ORAL
     Route: 048
  2. NIFEDIPINE [Concomitant]
  3. NIZATIDINE [Concomitant]
  4. CHLORPROMAZINE HCL [Concomitant]

REACTIONS (4)
  - CHROMATURIA [None]
  - JAUNDICE [None]
  - LIVER DISORDER [None]
  - OCULAR ICTERUS [None]
